FAERS Safety Report 24955264 (Version 1)
Quarter: 2025Q1

REPORT INFORMATION
  Report Type: Spontaneous
  Country: FR (occurrence: FR)
  Receive Date: 20250211
  Receipt Date: 20250211
  Transmission Date: 20250408
  Serious: Yes (Hospitalization, Other)
  Sender: ASTELLAS
  Company Number: None

PATIENT
  Age: 63 Year
  Sex: Female
  Weight: 62 kg

DRUGS (2)
  1. XOSPATA [Suspect]
     Active Substance: GILTERITINIB
     Indication: Acute myeloid leukaemia
     Dosage: FILM COATED TABLET
     Route: 048
     Dates: start: 20210721, end: 20211118
  2. XOSPATA [Suspect]
     Active Substance: GILTERITINIB
     Dosage: FILM COATED TABLET
     Route: 048
     Dates: start: 20211216, end: 20250108

REACTIONS (2)
  - Interstitial lung disease [Not Recovered/Not Resolved]
  - Dermatomyositis [Not Recovered/Not Resolved]

NARRATIVE: CASE EVENT DATE: 20220815
